FAERS Safety Report 15226256 (Version 3)
Quarter: 2018Q3

REPORT INFORMATION
  Report Type: Spontaneous
  Country: US (occurrence: US)
  Receive Date: 20180801
  Receipt Date: 20180918
  Transmission Date: 20181010
  Serious: No
  Sender: FDA-Public Use
  Company Number: US-HORIZON-PRO-0151-2018

PATIENT
  Age: 2 Year
  Sex: Male

DRUGS (9)
  1. VITAMIN D3 [Concomitant]
     Active Substance: CHOLECALCIFEROL
  2. INDOMETHACIN. [Concomitant]
     Active Substance: INDOMETHACIN
  3. LEVOCARNITINE. [Concomitant]
     Active Substance: LEVOCARNITINE
  4. CYTRA?3 [Concomitant]
  5. POTASSIUM PHOSPHATE [Concomitant]
     Active Substance: POTASSIUM PHOSPHATE
  6. PROCYSBI [Suspect]
     Active Substance: CYSTEAMINE BITARTRATE
     Indication: CYSTINOSIS
     Dosage: 275 MG IN THE MORNING, 300 MG AT NIGHT
     Dates: start: 201702
  7. IRON [Concomitant]
     Active Substance: IRON
  8. SODIUM BICARBONATE. [Concomitant]
     Active Substance: SODIUM BICARBONATE
  9. CALCITRIOL. [Concomitant]
     Active Substance: CALCITRIOL

REACTIONS (3)
  - Nausea [Unknown]
  - Vomiting [Unknown]
  - Skin odour abnormal [Unknown]
